FAERS Safety Report 6308100-6 (Version None)
Quarter: 2009Q3

REPORT INFORMATION
  Report Type: 
  Country: None (occurrence: None)
  Receive Date: 20090813
  Receipt Date: 20090806
  Transmission Date: 20100115
  Serious: Yes (Other)
  Sender: FDA-Public Use
  Company Number: US-JNJFOC-20090802319

PATIENT
  Sex: Female
  Weight: 63.5 kg

DRUGS (6)
  1. SIMPONI [Suspect]
     Indication: RHEUMATOID ARTHRITIS
     Route: 058
  2. ASPIRIN [Concomitant]
  3. INSULIN [Concomitant]
  4. PREDNISONE [Concomitant]
  5. LOVASTATIN [Concomitant]
  6. CALCIUM [Concomitant]

REACTIONS (1)
  - CONTUSION [None]
